FAERS Safety Report 5255037-X (Version None)
Quarter: 2007Q1

REPORT INFORMATION
  Report Type: 
  Country: None (occurrence: None)
  Receive Date: 20070228
  Receipt Date: 20070216
  Transmission Date: 20070707
  Serious: Yes (Hospitalization)
  Sender: FDA-Public Use
  Company Number: 2007BI003805

PATIENT
  Age: 50 Year
  Sex: Female
  Weight: 131.0895 kg

DRUGS (12)
  1. AVONEX [Suspect]
     Indication: MULTIPLE SCLEROSIS
     Dosage: 30 UG;QW;IM
     Route: 030
     Dates: start: 20050301
  2. LODINE [Concomitant]
  3. FLAXSEED OIL [Concomitant]
  4. FISH OIL [Concomitant]
  5. ZANTAC [Concomitant]
  6. CLARITIN [Concomitant]
  7. SYNTHROID [Concomitant]
  8. ADVAIR DISKUS 100/50 [Concomitant]
  9. DUONEB [Concomitant]
  10. CALCIUM SUPPLEMENT [Concomitant]
  11. ASPIRIN [Concomitant]
  12. FLEXERIL [Concomitant]

REACTIONS (9)
  - ARTHRITIS [None]
  - BLOOD POTASSIUM DECREASED [None]
  - DEPRESSION [None]
  - FLUID RETENTION [None]
  - FOOT FRACTURE [None]
  - GASTROOESOPHAGEAL REFLUX DISEASE [None]
  - HYPERTENSION [None]
  - HYPOTHYROIDISM [None]
  - JOINT ARTHROPLASTY [None]
